FAERS Safety Report 8889222 (Version 1)
Quarter: 2012Q4

REPORT INFORMATION
  Report Type: 
  Country: CN (occurrence: CN)
  Receive Date: 20121106
  Receipt Date: 20121106
  Transmission Date: 20130627
  Serious: Yes (Other)
  Sender: FDA-Public Use
  Company Number: CN-PFIZER INC-2012265644

PATIENT
  Age: 80 Year
  Sex: Male

DRUGS (4)
  1. VFEND [Suspect]
     Indication: PULMONARY ASPERGILLOSIS
     Dosage: 400 mg, 2x/day
     Route: 041
     Dates: start: 20070405, end: 200704
  2. VFEND [Suspect]
     Dosage: 200 mg, 2x/day
     Route: 041
     Dates: start: 200704, end: 200704
  3. VORICONAZOLE [Suspect]
     Indication: PULMONARY ASPERGILLOSIS
     Dosage: 200 mg, 2x/day
     Dates: end: 20070414
  4. PREDNISONE [Concomitant]
     Indication: DYSPNEA
     Dosage: UNK

REACTIONS (3)
  - Altered state of consciousness [Recovered/Resolved]
  - Generalised oedema [Recovered/Resolved]
  - Vision blurred [Recovered/Resolved]
